FAERS Safety Report 4524082-1 (Version None)
Quarter: 2004Q4

REPORT INFORMATION
  Report Type: 
  Country: None (occurrence: None)
  Receive Date: 20041119
  Receipt Date: 20040817
  Transmission Date: 20050328
  Serious: No
  Sender: FDA-Public Use
  Company Number: PHEH2004US08876

PATIENT
  Age: 60 Year
  Sex: Female

DRUGS (9)
  1. ZELNORM [Suspect]
     Indication: IRRITABLE BOWEL SYNDROME
     Dosage: 6 MG, BID, ORAL
     Route: 048
     Dates: start: 20040301
  2. ALLEGRA [Concomitant]
  3. LEXAPRO [Concomitant]
  4. MULTIVITAMINS (RETINOL, PANTHENOL) [Concomitant]
  5. HUMALOG [Concomitant]
  6. LIPITOR [Concomitant]
  7. TRAZODONE HCL [Concomitant]
  8. DOIVAN (VALSARTAN) [Concomitant]
  9. ASPIRIN [Concomitant]

REACTIONS (2)
  - CONDITION AGGRAVATED [None]
  - FLATULENCE [None]
